FAERS Safety Report 4481999-4 (Version None)
Quarter: 2004Q4

REPORT INFORMATION
  Report Type: 
  Country: None (occurrence: None)
  Receive Date: 20041022
  Receipt Date: 20040614
  Transmission Date: 20050328
  Serious: Yes (Death, Other)
  Sender: FDA-Public Use
  Company Number: PHFR2004GB02476

PATIENT
  Age: 41 Year
  Sex: Male

DRUGS (3)
  1. CLOZARIL [Suspect]
     Indication: SCHIZOPHRENIA
     Dosage: 150MG/DAY
     Route: 048
     Dates: start: 20040112
  2. CLONAZEPAM [Concomitant]
     Dosage: .5 MG, BID
     Route: 048
     Dates: start: 20031230
  3. CHLORPROMAZINE [Concomitant]
     Dosage: 100 MG, TID
     Route: 048

REACTIONS (8)
  - CARDIO-RESPIRATORY ARREST [None]
  - DEHYDRATION [None]
  - DIARRHOEA [None]
  - DRUG LEVEL INCREASED [None]
  - HYPOVOLAEMIA [None]
  - MYOCARDITIS [None]
  - PERICARDITIS [None]
  - VENTRICULAR HYPERTROPHY [None]
